FAERS Safety Report 5608958-X (Version None)
Quarter: 2008Q1

REPORT INFORMATION
  Report Type: 
  Country: None (occurrence: None)
  Receive Date: 20080129
  Receipt Date: 20080129
  Transmission Date: 20080703
  Serious: Yes (Disabling)
  Sender: FDA-Public Use
  Company Number: None

PATIENT
  Age: 6 Year
  Sex: Male
  Weight: 29.4838 kg

DRUGS (1)
  1. SULFASALAZINE [Suspect]
     Indication: JUVENILE ARTHRITIS
     Dosage: 1 + 1/2 TSP  2XDAILY  PO
     Route: 048
     Dates: start: 20070110, end: 20070705

REACTIONS (6)
  - DYSGRAPHIA [None]
  - EDUCATIONAL PROBLEM [None]
  - OBSESSIVE-COMPULSIVE DISORDER [None]
  - READING DISORDER [None]
  - TIC [None]
  - URTICARIA [None]
